FAERS Safety Report 4349566-0 (Version None)
Quarter: 2004Q1

REPORT INFORMATION
  Report Type: 
  Country: None (occurrence: None)
  Receive Date: 20040329
  Receipt Date: 20031202
  Transmission Date: 20041129
  Serious: No
  Sender: FDA-Public Use
  Company Number: USA031253733

PATIENT
  Age: 7 Year
  Sex: Male
  Weight: 25 kg

DRUGS (1)
  1. STRATTERA [Suspect]
     Indication: IMPULSE-CONTROL DISORDER
     Dosage: 18 MG/DAY
     Dates: start: 20031101

REACTIONS (5)
  - EMOTIONAL DISORDER [None]
  - FEELING JITTERY [None]
  - PRURITUS [None]
  - PSYCHOMOTOR HYPERACTIVITY [None]
  - TREMOR [None]
